FAERS Safety Report 5050380-1 (Version None)
Quarter: 2006Q2

REPORT INFORMATION
  Report Type: 
  Country: None (occurrence: None)
  Receive Date: 20060614
  Receipt Date: 20060314
  Transmission Date: 20061013
  Serious: Yes (Other)
  Sender: FDA-Public Use
  Company Number: 427764

PATIENT
  Age: 76 Year
  Sex: Female

DRUGS (5)
  1. BONIVA [Suspect]
     Indication: DRUG USE FOR UNKNOWN INDICATION
     Dosage: ORAL
     Route: 048
  2. SYNTHROID [Concomitant]
  3. ASCORBIC ACID [Concomitant]
  4. MULTIVITAMIN NOS (MULTIVITAMIN NOS) [Concomitant]
  5. CALCIUM (CALCIUM) [Concomitant]

REACTIONS (8)
  - BURNING SENSATION [None]
  - DEPRESSION [None]
  - DIARRHOEA [None]
  - DYSPNOEA [None]
  - MUSCLE SPASMS [None]
  - OESOPHAGEAL DISCOMFORT [None]
  - OESOPHAGEAL PAIN [None]
  - TREMOR [None]
